FAERS Safety Report 10048948 (Version 1)
Quarter: 2014Q1

REPORT INFORMATION
  Report Type: Spontaneous
  Country: ES (occurrence: ES)
  Receive Date: 20140331
  Receipt Date: 20140331
  Transmission Date: 20141002
  Serious: Yes (Other)
  Sender: FDA-Public Use
  Company Number: ES-ASTRAZENECA-2014SE19771

PATIENT
  Age: 54 Year
  Sex: Female

DRUGS (3)
  1. MEPIVACAINE [Suspect]
     Indication: LOCAL ANAESTHESIA
  2. LIDOCAINE [Suspect]
     Indication: LOCAL ANAESTHESIA
  3. PROCAINE [Suspect]
     Indication: LOCAL ANAESTHESIA

REACTIONS (5)
  - Pruritus [Unknown]
  - Swelling face [Unknown]
  - Dizziness [Unknown]
  - Oropharyngeal discomfort [Unknown]
  - Drug hypersensitivity [Unknown]
